FAERS Safety Report 22241735 (Version 4)
Quarter: 2023Q2

REPORT INFORMATION
  Report Type: Report from Study
  Country: US (occurrence: US)
  Receive Date: 20230421
  Receipt Date: 20230524
  Transmission Date: 20230722
  Serious: No
  Sender: FDA-Public Use
  Company Number: US-002147023-NVSC2023US090352

PATIENT
  Sex: Male

DRUGS (1)
  1. ENTRESTO [Suspect]
     Active Substance: SACUBITRIL\VALSARTAN
     Indication: Product used for unknown indication
     Dosage: 24 MG, BID (24/26MG 1 BID)
     Route: 065

REACTIONS (6)
  - Brain fog [Unknown]
  - Gait disturbance [Unknown]
  - Asthenia [Unknown]
  - Throat clearing [Unknown]
  - Depressed mood [Unknown]
  - Feeling drunk [Unknown]
